FAERS Safety Report 7157426-5 (Version None)
Quarter: 2010Q4

REPORT INFORMATION
  Report Type: 
  Country: None (occurrence: None)
  Receive Date: 20101214
  Receipt Date: 20101209
  Transmission Date: 20110411
  Serious: Yes (Death, Hospitalization)
  Sender: FDA-Public Use
  Company Number: A0888029A

PATIENT
  Age: 74 Year
  Sex: Female

DRUGS (3)
  1. VOTRIENT [Suspect]
     Dosage: 800MG PER DAY
     Route: 048
  2. SUTENT [Concomitant]
  3. NO CONCURRENT MEDICATIONS [Concomitant]

REACTIONS (1)
  - DEATH [None]
